FAERS Safety Report 6572889-1 (Version None)
Quarter: 2010Q1

REPORT INFORMATION
  Report Type: 
  Country: None (occurrence: None)
  Receive Date: 20100207
  Receipt Date: 20100126
  Transmission Date: 20100710
  Serious: Yes (Hospitalization)
  Sender: FDA-Public Use
  Company Number: US-MERCK-0912USA03452

PATIENT
  Age: 81 Year
  Sex: Female

DRUGS (9)
  1. FOSAMAX [Suspect]
     Indication: OSTEOPOROSIS
     Route: 048
     Dates: start: 20081003, end: 20090101
  2. LISINOPRIL [Concomitant]
     Indication: HYPERTENSION
     Route: 048
  3. SIMVASTATIN [Concomitant]
     Route: 065
  4. LASIX [Concomitant]
     Route: 065
  5. DIURETIC (UNSPECIFIED) [Concomitant]
     Route: 065
  6. PAXIL [Concomitant]
     Route: 065
  7. OMEPRAZOLE [Concomitant]
     Indication: GASTROOESOPHAGEAL REFLUX DISEASE
     Route: 048
  8. HYDROCHLOROTHIAZIDE [Concomitant]
     Indication: HYPERTENSION
     Route: 048
  9. ZOLOFT [Concomitant]
     Indication: DEPRESSION
     Route: 048

REACTIONS (7)
  - BACK PAIN [None]
  - DEMENTIA [None]
  - DEPRESSION [None]
  - FALL [None]
  - HIP FRACTURE [None]
  - MUSCLE ATROPHY [None]
  - SPINAL COMPRESSION FRACTURE [None]
